FAERS Safety Report 15920916 (Version 1)
Quarter: 2019Q1

REPORT INFORMATION
  Report Type: Spontaneous
  Country: BR (occurrence: BR)
  Receive Date: 20190205
  Receipt Date: 20190205
  Transmission Date: 20190417
  Serious: Yes (Other)
  Sender: FDA-Public Use
  Company Number: PHHY2019BR023343

PATIENT
  Sex: Male
  Weight: 73 kg

DRUGS (3)
  1. CIPROFLOXACIN. [Suspect]
     Active Substance: CIPROFLOXACIN
     Indication: URINARY TRACT INFECTION BACTERIAL
     Dosage: UNK
     Route: 065
  2. AMOXICILLIN+CLAVULANATE [Suspect]
     Active Substance: AMOXICILLIN\CLAVULANATE POTASSIUM
     Indication: URINARY TRACT INFECTION BACTERIAL
     Dosage: UNK
     Route: 065
  3. DOXACIN [Concomitant]
     Indication: PROSTATOMEGALY
     Dosage: UNK
     Route: 065

REACTIONS (1)
  - Urinary tract infection bacterial [Unknown]
